FAERS Safety Report 13739046 (Version 1)
Quarter: 2017Q3

REPORT INFORMATION
  Report Type: Spontaneous
  Country: US (occurrence: US)
  Receive Date: 20170710
  Receipt Date: 20170710
  Transmission Date: 20171127
  Serious: Yes (Hospitalization, Other)
  Sender: FDA-Public Use
  Company Number: US-SAOL THERAPEUTICS-2017SAO00368

PATIENT
  Age: 25 Year
  Sex: Male
  Weight: 55.15 kg

DRUGS (3)
  1. ZONISAMIDE. [Concomitant]
     Active Substance: ZONISAMIDE
  2. BACLOFEN. [Suspect]
     Active Substance: BACLOFEN
     Dosage: 1202.6 ?G, \DAY
     Dates: start: 20161212
  3. BACLOFEN. [Suspect]
     Active Substance: BACLOFEN
     Indication: MUSCLE SPASTICITY
     Dosage: 1200 ?G, \DAY

REACTIONS (3)
  - Tremor [Unknown]
  - Drug withdrawal syndrome [Recovered/Resolved]
  - Device failure [Recovered/Resolved]

NARRATIVE: CASE EVENT DATE: 20170214
